FAERS Safety Report 15826611 (Version 1)
Quarter: 2019Q1

REPORT INFORMATION
  Report Type: Spontaneous
  Country: US (occurrence: US)
  Receive Date: 20190115
  Receipt Date: 20190115
  Transmission Date: 20190417
  Serious: No
  Sender: FDA-Public Use
  Company Number: US-PFIZER INC-2019018598

PATIENT
  Age: 13 Year
  Sex: Male

DRUGS (1)
  1. GENOTROPIN [Suspect]
     Active Substance: SOMATROPIN
     Indication: MEDULLOBLASTOMA
     Dosage: 1.1 MG, DAILY
     Dates: start: 20151204

REACTIONS (4)
  - Blood insulin increased [Unknown]
  - Product use in unapproved indication [Unknown]
  - High density lipoprotein increased [Unknown]
  - Blood testosterone increased [Unknown]

NARRATIVE: CASE EVENT DATE: 20151204
